FAERS Safety Report 4402280-5 (Version None)
Quarter: 2004Q3

REPORT INFORMATION
  Report Type: 
  Country: None (occurrence: None)
  Receive Date: 20040720
  Receipt Date: 20040719
  Transmission Date: 20050211
  Serious: Yes (Other)
  Sender: FDA-Public Use
  Company Number: US-GLAXOSMITHKLINE-A0518782A

PATIENT
  Sex: Female

DRUGS (3)
  1. VENTOLIN [Suspect]
     Indication: ASTHMA
     Route: 055
  2. XOPENEX [Concomitant]
  3. FLOVENT [Concomitant]

REACTIONS (1)
  - PRINZMETAL ANGINA [None]
